FAERS Safety Report 9845643 (Version 1)
Quarter: 2014Q1

REPORT INFORMATION
  Report Type: Spontaneous
  Country: US (occurrence: None)
  Receive Date: 20140122
  Receipt Date: 20140122
  Transmission Date: 20141002
  Serious: Yes (Death)
  Sender: FDA-Public Use
  Company Number: SYM-2014-14954

PATIENT
  Age: 42 Year
  Sex: Female

DRUGS (1)
  1. BUPROPION HYDROCHLORIDE) (BUPROPION HYDROCHLORIDE) [Suspect]
     Indication: PRODUCT USED FOR UNKNOWN INDICATION
     Route: 048

REACTIONS (2)
  - Drug abuse [None]
  - Intentional drug misuse [None]
